FAERS Safety Report 6047164-4 (Version None)
Quarter: 2009Q1

REPORT INFORMATION
  Report Type: 
  Country: None (occurrence: None)
  Receive Date: 20090122
  Receipt Date: 20090116
  Transmission Date: 20090719
  Serious: Yes (Life-Threatening, Hospitalization, Other)
  Sender: FDA-Public Use
  Company Number: CH-BAYER-200830071GPV

PATIENT
  Age: 34 Year
  Sex: Female
  Weight: 64 kg

DRUGS (3)
  1. ADALAT CC [Suspect]
     Indication: DRUG USE FOR UNKNOWN INDICATION
     Dosage: UNIT DOSE: 20 MG
     Route: 048
     Dates: start: 20080111, end: 20080112
  2. CORTICOSTEROIDS [Concomitant]
     Indication: DRUG USE FOR UNKNOWN INDICATION
     Route: 065
  3. INDOMETHACIN [Concomitant]
     Indication: DRUG USE FOR UNKNOWN INDICATION
     Route: 065

REACTIONS (6)
  - CHEST DISCOMFORT [None]
  - COUGH [None]
  - DYSPNOEA [None]
  - PALPITATIONS [None]
  - PLEURAL EFFUSION [None]
  - RESPIRATORY FAILURE [None]
